FAERS Safety Report 15404459 (Version 2)
Quarter: 2018Q4

REPORT INFORMATION
  Report Type: Spontaneous
  Country: AU (occurrence: AU)
  Receive Date: 20180919
  Receipt Date: 20181102
  Transmission Date: 20190204
  Serious: Yes (Other)
  Sender: FDA-Public Use
  Company Number: AU-SHIRE-AU201834734

PATIENT

DRUGS (5)
  1. VYVANSE [Suspect]
     Active Substance: LISDEXAMFETAMINE DIMESYLATE
     Indication: ATTENTION DEFICIT/HYPERACTIVITY DISORDER
     Dosage: 70 MG, 2 CAPSULES DAILY FOR FOUR DAYS
     Route: 048
     Dates: start: 20160429, end: 20170727
  2. VYVANSE [Suspect]
     Active Substance: LISDEXAMFETAMINE DIMESYLATE
     Dosage: 70 MG, 2 CAPSULES DAILY FOR FOUR DAYS
     Route: 048
     Dates: start: 20171102
  3. SODIUM VALPROATE [Concomitant]
     Active Substance: VALPROATE SODIUM
     Indication: PRODUCT USED FOR UNKNOWN INDICATION
  4. QUTIAPINE [Concomitant]
     Indication: PRODUCT USED FOR UNKNOWN INDICATION
  5. PANADEINE FORTE [Concomitant]
     Active Substance: ACETAMINOPHEN\CODEINE PHOSPHATE
     Indication: PRODUCT USED FOR UNKNOWN INDICATION

REACTIONS (6)
  - Overdose [Unknown]
  - Affect lability [Unknown]
  - Hallucination, auditory [Unknown]
  - Euphoric mood [Unknown]
  - Hypomania [Unknown]
  - Grandiosity [Unknown]
